FAERS Safety Report 21814444 (Version 2)
Quarter: 2023Q2

REPORT INFORMATION
  Report Type: Spontaneous
  Country: US (occurrence: US)
  Receive Date: 20230104
  Receipt Date: 20230519
  Transmission Date: 20230722
  Serious: No
  Sender: FDA-Public Use
  Company Number: US-BRISTOL-MYERS SQUIBB COMPANY-2023-000988

PATIENT
  Age: 65 Year
  Sex: Male

DRUGS (2)
  1. ORENCIA [Suspect]
     Active Substance: ABATACEPT
     Indication: Rheumatoid arthritis
     Dosage: EVERY WEEK
     Route: 058
     Dates: start: 202103
  2. ORENCIA [Suspect]
     Active Substance: ABATACEPT
     Dosage: EVERY WEEK
     Route: 058
     Dates: start: 202103

REACTIONS (2)
  - Joint swelling [Unknown]
  - Arthralgia [Unknown]
